FAERS Safety Report 12310914 (Version 2)
Quarter: 2016Q2

REPORT INFORMATION
  Report Type: Spontaneous
  Country: US (occurrence: US)
  Receive Date: 20160427
  Receipt Date: 20160509
  Transmission Date: 20160815
  Serious: Yes (Hospitalization, Disabling)
  Sender: FDA-Public Use
  Company Number: US-LPDUSPRD-20160347

PATIENT
  Age: 82 Year
  Sex: Male

DRUGS (1)
  1. INJECTAFER [Suspect]
     Active Substance: FERRIC CARBOXYMALTOSE
     Dosage: 2 DOSES A WEEK APART MONTHLY
     Route: 042
     Dates: start: 20150331, end: 20160412

REACTIONS (11)
  - Back disorder [Unknown]
  - Hypophosphataemia [Unknown]
  - Local swelling [Unknown]
  - Arthralgia [Unknown]
  - Pain in extremity [Unknown]
  - Back pain [Unknown]
  - Sciatica [Unknown]
  - Myalgia [Unknown]
  - Bedridden [Recovered/Resolved with Sequelae]
  - Limb discomfort [Unknown]
  - Abasia [Unknown]

NARRATIVE: CASE EVENT DATE: 2015
